FAERS Safety Report 12276309 (Version 2)
Quarter: 2016Q2

REPORT INFORMATION
  Report Type: Spontaneous
  Country: JP (occurrence: JP)
  Receive Date: 20160418
  Receipt Date: 20160606
  Transmission Date: 20160815
  Serious: Yes (Hospitalization)
  Sender: FDA-Public Use
  Company Number: JP-TEVA-2016-JP-000318J

PATIENT
  Age: 56 Year
  Sex: Male

DRUGS (4)
  1. SAWACILLIN [Suspect]
     Active Substance: AMOXICILLIN
     Indication: HELICOBACTER INFECTION
     Dosage: 1500 MILLIGRAM DAILY;
     Route: 048
     Dates: start: 20160128, end: 20160129
  2. BIO-THREE [Concomitant]
     Active Substance: HERBALS
     Indication: HELICOBACTER INFECTION
     Dosage: 4 DOSAGE FORMS DAILY;
     Route: 048
     Dates: start: 20160128, end: 20160129
  3. LANSOPRAZOLE OD TABLET 30MG ^TEVA^ [Suspect]
     Active Substance: LANSOPRAZOLE
     Indication: HELICOBACTER INFECTION
     Dosage: 60 MILLIGRAM DAILY;
     Route: 048
     Dates: start: 20160128, end: 20160129
  4. CLARITHROMYCIN. [Suspect]
     Active Substance: CLARITHROMYCIN
     Indication: HELICOBACTER INFECTION
     Dosage: 800 MILLIGRAM DAILY;
     Route: 048
     Dates: start: 20160128, end: 20160129

REACTIONS (4)
  - Eosinophil count increased [Recovered/Resolved]
  - Toxic skin eruption [Recovered/Resolved]
  - Oedema peripheral [Unknown]
  - Renal disorder [Recovering/Resolving]

NARRATIVE: CASE EVENT DATE: 20160129
